FAERS Safety Report 11875160 (Version 1)
Quarter: 2015Q4

REPORT INFORMATION
  Report Type: Spontaneous
  Country: US (occurrence: US)
  Receive Date: 20151229
  Receipt Date: 20151229
  Transmission Date: 20160305
  Serious: No
  Sender: FDA-Public Use
  Company Number: US-BAYER-2015-496966

PATIENT
  Age: 53 Year
  Sex: Female
  Weight: 77.9 kg

DRUGS (1)
  1. ALEVE [Suspect]
     Active Substance: NAPROXEN SODIUM
     Indication: TOOTHACHE
     Dosage: 2 DF, PRN
     Route: 048

REACTIONS (3)
  - Product odour abnormal [None]
  - Nausea [None]
  - Product use issue [None]
